FAERS Safety Report 7756052 (Version 5)
Quarter: 2013Q2

REPORT INFORMATION
  Report Type: Report from Study
  Country: US (occurrence: US)
  Receive Date: 20110111
  Receipt Date: 20130510
  Transmission Date: 20140414
  Serious: Yes (Other)
  Sender: FDA-Public Use
  Company Number: PHHY2011US00573

PATIENT
  Age: 31 Year
  Sex: Female

DRUGS (18)
  1. AFINITOR [Suspect]
     Dosage: 5 MG, DAILY
     Route: 048
     Dates: start: 20101227
  2. AFINITOR [Suspect]
     Dosage: 10 MG, DAILY
  3. AFINITOR [Suspect]
     Dosage: 12.5 MG, DAILY
  4. AFINITOR [Suspect]
     Dosage: 15 MG, DAILY
     Route: 048
  5. TOPAMAX [Concomitant]
  6. LAMOTRIGINE [Concomitant]
  7. KLONOPIN [Concomitant]
  8. DOXEPIN [Concomitant]
  9. PROGESTERONE [Concomitant]
  10. MULTIVITAMINS [Concomitant]
  11. B12 [Concomitant]
  12. VITAMIN D [Concomitant]
  13. CALCIUM [Concomitant]
  14. ZINC [Concomitant]
  15. POTASSIUM [Concomitant]
  16. MAGNESIUM [Concomitant]
  17. FIBER [Concomitant]
  18. BANZEL [Concomitant]

REACTIONS (6)
  - Brain mass [Unknown]
  - Atonic seizures [Not Recovered/Not Resolved]
  - Pineal gland cyst [Unknown]
  - Drug level below therapeutic [Unknown]
  - Rash [Not Recovered/Not Resolved]
  - Nausea [Recovered/Resolved]
